FAERS Safety Report 13307427 (Version 1)
Quarter: 2017Q1

REPORT INFORMATION
  Report Type: Spontaneous
  Country: US (occurrence: US)
  Receive Date: 20170308
  Receipt Date: 20170308
  Transmission Date: 20170428
  Serious: No
  Sender: FDA-Public Use
  Company Number: US-PERRIGO-16US017592

PATIENT
  Age: 76 Year
  Sex: Male
  Weight: 83.9 kg

DRUGS (2)
  1. NAPROXEN SODIUM. [Suspect]
     Active Substance: NAPROXEN SODIUM
     Indication: HEADACHE
     Dosage: 440 MG, SINGLE AT 1300; 220 MG TWICE
     Route: 048
     Dates: start: 20160626, end: 20160626
  2. NAPROXEN SODIUM. [Suspect]
     Active Substance: NAPROXEN SODIUM
     Indication: BACK PAIN
     Dosage: 440 MG, SINGLE AT 0300
     Route: 048
     Dates: start: 20160627, end: 20160627

REACTIONS (2)
  - Drug ineffective [Unknown]
  - Overdose [Recovered/Resolved]

NARRATIVE: CASE EVENT DATE: 20160626
